FAERS Safety Report 23741621 (Version 1)
Quarter: 2024Q2

REPORT INFORMATION
  Report Type: Spontaneous
  Country: US (occurrence: None)
  Receive Date: 20240412
  Receipt Date: 20240412
  Transmission Date: 20240716
  Serious: No
  Sender: FDA-Public Use
  Company Number: None

PATIENT
  Sex: Female

DRUGS (7)
  1. ADBRY [Suspect]
     Active Substance: TRALOKINUMAB-LDRM
     Indication: Neurodermatitis
     Dosage: OTHER FREQUENCY : EVERY 4 WEEKS;?FREQ: INJECT 300 MG UNDER THE SKIN (SUBCUTANEOUS INJECTION) UNDER T
     Route: 058
     Dates: start: 20230404
  2. ADBRY [Concomitant]
     Active Substance: TRALOKINUMAB-LDRM
  3. AUVI-Q [Concomitant]
     Active Substance: EPINEPHRINE
  4. ELURYNG [Concomitant]
     Active Substance: ETHINYL ESTRADIOL\ETONOGESTREL
  5. EUCRISA [Concomitant]
  6. PREDNISONE [Concomitant]
     Active Substance: PREDNISONE
  7. lsKYLA [Concomitant]

REACTIONS (1)
  - Neurodermatitis [None]
